FAERS Safety Report 6376745-3 (Version None)
Quarter: 2009Q3

REPORT INFORMATION
  Report Type: 
  Country: None (occurrence: None)
  Receive Date: 20090924
  Receipt Date: 20090924
  Transmission Date: 20100115
  Serious: Yes (Disabling)
  Sender: FDA-Public Use
  Company Number: None

PATIENT
  Sex: Male
  Weight: 70.3075 kg

DRUGS (1)
  1. STELAZINE [Suspect]
     Indication: MENTAL DISORDER
     Dosage: 5 MG 2 DAILY  APPROX. 20 YEARS
     Dates: start: 19850101, end: 20050101

REACTIONS (2)
  - DISCOMFORT [None]
  - NERVE INJURY [None]
